FAERS Safety Report 20016082 (Version 1)
Quarter: 2021Q4

REPORT INFORMATION
  Report Type: Spontaneous
  Country: US (occurrence: None)
  Receive Date: 20211102
  Receipt Date: 20211102
  Transmission Date: 20220303
  Serious: Yes (Hospitalization)
  Sender: FDA-Public Use
  Company Number: None

PATIENT
  Age: 72 Year
  Sex: Male

DRUGS (1)
  1. IMATINIB MESYLATE [Suspect]
     Active Substance: IMATINIB MESYLATE
     Indication: Soft tissue sarcoma
     Dosage: FREQUENCY : DAILY;?TAKE 1 TABLET BY MOUTH DAILY.  TAKE WITH FOOD
     Route: 048
     Dates: start: 20210811

REACTIONS (2)
  - Haemorrhage [None]
  - Abdominal pain upper [None]

NARRATIVE: CASE EVENT DATE: 20211030
